FAERS Safety Report 4378507-5 (Version None)
Quarter: 2004Q2

REPORT INFORMATION
  Report Type: 
  Country: None (occurrence: None)
  Receive Date: 20040609
  Receipt Date: 20040526
  Transmission Date: 20050107
  Serious: Yes (Death, Other)
  Sender: FDA-Public Use
  Company Number: US_030494123

PATIENT
  Age: 40 Year
  Sex: Male
  Weight: 100 kg

DRUGS (12)
  1. ZYPREXA [Suspect]
     Indication: ANXIETY
     Dates: start: 20001201
  2. ZYPREXA [Suspect]
     Indication: DEPRESSION
     Dates: start: 20001201
  3. ZYPREXA [Suspect]
     Indication: DRUG WITHDRAWAL SYNDROME
     Dates: start: 20001201
  4. PROZAC [Suspect]
     Dosage: 20 MG/2 DAY
     Dates: start: 19980806
  5. DEPAKOTE [Concomitant]
  6. PRILOSEC [Concomitant]
  7. TRAZODONE HCL [Concomitant]
  8. CLONIDINE HCL [Concomitant]
  9. NEURONTIN [Concomitant]
  10. VERAPAMIL [Concomitant]
  11. BUSPAR [Concomitant]
  12. RISPERDAL [Concomitant]

REACTIONS (37)
  - ACUTE RESPIRATORY DISTRESS SYNDROME [None]
  - BLOOD CHLORIDE DECREASED [None]
  - BLOOD CREATININE INCREASED [None]
  - BLOOD PH INCREASED [None]
  - BLOOD SODIUM DECREASED [None]
  - BLOOD UREA INCREASED [None]
  - BODY TEMPERATURE INCREASED [None]
  - CARDIAC ARREST [None]
  - CARDIO-RESPIRATORY ARREST [None]
  - CEREBROVASCULAR ACCIDENT [None]
  - CSF WHITE BLOOD CELL COUNT POSITIVE [None]
  - DIABETES MELLITUS [None]
  - DIABETIC HYPEROSMOLAR COMA [None]
  - DIABETIC KETOACIDOSIS [None]
  - DISORIENTATION [None]
  - DISSEMINATED INTRAVASCULAR COAGULATION [None]
  - DYSARTHRIA [None]
  - DYSPNOEA [None]
  - ELECTROENCEPHALOGRAM ABNORMAL [None]
  - EPISTAXIS [None]
  - FALL [None]
  - FATIGUE [None]
  - FEELING ABNORMAL [None]
  - FIBRIN DEGRADATION PRODUCTS [None]
  - HEAD INJURY [None]
  - HYPERTHERMIA [None]
  - HYPOTENSION [None]
  - LYMPHOCYTE COUNT DECREASED [None]
  - MULTI-ORGAN FAILURE [None]
  - NEUTROPHIL COUNT INCREASED [None]
  - PCO2 DECREASED [None]
  - PNEUMONIA [None]
  - RED BLOOD CELL COUNT DECREASED [None]
  - RENAL FAILURE [None]
  - SEPSIS [None]
  - SWAN GANZ CATHETER PLACEMENT [None]
  - VENTRICULAR TACHYCARDIA [None]
